FAERS Safety Report 10537839 (Version 1)
Quarter: 2014Q4

REPORT INFORMATION
  Report Type: Spontaneous
  Country: US (occurrence: None)
  Receive Date: 20141022
  Receipt Date: 20141022
  Transmission Date: 20150529
  Serious: No
  Sender: FDA-Public Use
  Company Number: None

PATIENT
  Sex: Female

DRUGS (1)
  1. HUMIRA [Suspect]
     Active Substance: ADALIMUMAB
     Indication: ARTHROPATHY
     Dosage: 40 MG Q2W SC
     Route: 058
     Dates: start: 20140515

REACTIONS (3)
  - Psoriasis [None]
  - Rheumatoid arthritis [None]
  - Pruritus [None]
